FAERS Safety Report 9629531 (Version 1)
Quarter: 2013Q4

REPORT INFORMATION
  Report Type: Spontaneous
  Country: IT (occurrence: IT)
  Receive Date: 20131017
  Receipt Date: 20131017
  Transmission Date: 20140711
  Serious: Yes (Hospitalization)
  Sender: FDA-Public Use
  Company Number: IT-ASTRAZENECA-2013SE74835

PATIENT
  Age: 9773 Day
  Sex: Female

DRUGS (4)
  1. SEROQUEL [Suspect]
     Indication: BULIMIA NERVOSA
     Route: 048
     Dates: start: 20131005, end: 20131005
  2. TALOFEN [Suspect]
     Indication: BULIMIA NERVOSA
     Dosage: 4G/100ML, 30 ML,ONCE/SINGLE ADMINISTRATION
     Route: 048
     Dates: start: 20131005, end: 20131005
  3. NOZINAN [Suspect]
     Indication: BULIMIA NERVOSA
     Route: 048
     Dates: start: 20131005, end: 20131005
  4. TAVOR [Suspect]
     Indication: BULIMIA NERVOSA
     Route: 048
     Dates: start: 20131005, end: 20131005

REACTIONS (3)
  - Abdominal pain [Recovering/Resolving]
  - Sopor [Recovering/Resolving]
  - Drug abuse [Recovering/Resolving]
